FAERS Safety Report 7169762-7 (Version None)
Quarter: 2010Q4

REPORT INFORMATION
  Report Type: 
  Country: None (occurrence: None)
  Receive Date: 20101217
  Receipt Date: 20100311
  Transmission Date: 20110411
  Serious: No
  Sender: FDA-Public Use
  Company Number: A0849707A

PATIENT
  Age: 64 Year
  Sex: Female

DRUGS (4)
  1. SORIATANE [Suspect]
     Indication: PSORIASIS
     Dosage: 25MG PER DAY
     Route: 048
     Dates: start: 20070101
  2. ACTONEL [Concomitant]
  3. ACTIVELLA [Concomitant]
  4. CELEBREX [Concomitant]

REACTIONS (1)
  - ALOPECIA [None]
